FAERS Safety Report 10643332 (Version 1)
Quarter: 2014Q4

REPORT INFORMATION
  Report Type: Spontaneous
  Country: US (occurrence: None)
  Receive Date: 20141121
  Receipt Date: 20141121
  Transmission Date: 20150529
  Serious: Yes (Other)
  Sender: FDA-Public Use
  Company Number: 163-10004-14090114

PATIENT
  Age: 72 Year
  Sex: Male

DRUGS (8)
  1. OTEZLA [Suspect]
     Active Substance: APREMILAST
     Indication: PSORIATIC ARTHROPATHY
     Dosage: 60 MG, 2 IN 1 D, PO
     Route: 048
     Dates: start: 20140820
  2. ULORIC [Concomitant]
     Active Substance: FEBUXOSTAT
  3. NITRO CAPS (GLYCERYL TRINITRATE) [Concomitant]
  4. GABAPENTIN (GABAPENTIN) [Concomitant]
     Active Substance: GABAPENTIN
  5. CRESTOR [Concomitant]
     Active Substance: ROSUVASTATIN CALCIUM
  6. LEVEMIR [Concomitant]
     Active Substance: INSULIN DETEMIR
  7. HUMULIN (UNKNOWN) [Concomitant]
  8. LEVOTHYROXINE (LEVOTHYROXINE) [Concomitant]
     Active Substance: LEVOTHYROXINE

REACTIONS (1)
  - Depressed mood [None]

NARRATIVE: CASE EVENT DATE: 201408
